FAERS Safety Report 12608566 (Version 4)
Quarter: 2016Q4

REPORT INFORMATION
  Report Type: Spontaneous
  Country: DE (occurrence: DE)
  Receive Date: 20160729
  Receipt Date: 20161028
  Transmission Date: 20170207
  Serious: Yes (Other)
  Sender: FDA-Public Use
  Company Number: DE-ELI_LILLY_AND_COMPANY-DE201603001533

PATIENT
  Age: 39 Year
  Sex: Male
  Weight: 116 kg

DRUGS (13)
  1. TRULICITY [Suspect]
     Active Substance: DULAGLUTIDE
     Indication: TYPE 2 DIABETES MELLITUS
     Dosage: 1.5 MG, WEEKLY (1/W)
     Route: 058
     Dates: start: 20151112, end: 20160118
  2. LIPROLOG [Concomitant]
     Active Substance: INSULIN LISPRO
     Dosage: 25 IU, TID
     Route: 065
  3. METFORMIN [Concomitant]
     Active Substance: METFORMIN HYDROCHLORIDE
     Dosage: 1000 MG, EACH EVENING
     Route: 065
     Dates: start: 20160629
  4. TRULICITY [Suspect]
     Active Substance: DULAGLUTIDE
     Dosage: 1.5 MG, WEEKLY (1/W)
     Route: 065
     Dates: start: 20160329, end: 20160425
  5. LIPROLOG [Concomitant]
     Active Substance: INSULIN LISPRO
     Dosage: 10 IU, OTHER
     Route: 065
     Dates: start: 20160629
  6. LIPROLOG [Concomitant]
     Active Substance: INSULIN LISPRO
     Dosage: 75 UNK, UNKNOWN
     Route: 065
  7. LIPROLOG [Concomitant]
     Active Substance: INSULIN LISPRO
     Dosage: 16 IU, EACH MORNING
     Route: 065
     Dates: start: 20160629
  8. LANTUS [Concomitant]
     Active Substance: INSULIN GLARGINE
     Dosage: 40 IU, EACH EVENING
  9. LIPROLOG [Concomitant]
     Active Substance: INSULIN LISPRO
     Dosage: 16 IU, EACH EVENING
     Route: 065
     Dates: start: 20160629
  10. LANTUS [Concomitant]
     Active Substance: INSULIN GLARGINE
     Indication: PRODUCT USED FOR UNKNOWN INDICATION
     Dosage: 50 IU, EACH MORNING
     Dates: start: 2014
  11. METFORMIN [Concomitant]
     Active Substance: METFORMIN HYDROCHLORIDE
     Indication: PRODUCT USED FOR UNKNOWN INDICATION
     Dosage: 1000 MG, TID
     Route: 065
  12. METFORMIN [Concomitant]
     Active Substance: METFORMIN HYDROCHLORIDE
     Dosage: 1000 MG, EACH MORNING
     Route: 065
     Dates: start: 20160629
  13. LIPROLOG [Concomitant]
     Active Substance: INSULIN LISPRO
     Indication: PRODUCT USED FOR UNKNOWN INDICATION
     Dosage: 50 IU, UNKNOWN
     Route: 065
     Dates: start: 2014

REACTIONS (11)
  - Hepatic cyst [Unknown]
  - Prothrombin time shortened [Unknown]
  - International normalised ratio decreased [Unknown]
  - Incorrect dose administered [Unknown]
  - Blood triglycerides increased [Unknown]
  - Red blood cell sedimentation rate increased [Unknown]
  - Blood cholinesterase increased [Unknown]
  - Toxicity to various agents [Unknown]
  - Weight decreased [Unknown]
  - Glucose urine present [Unknown]
  - Non-alcoholic steatohepatitis [Recovered/Resolved]

NARRATIVE: CASE EVENT DATE: 201511
